FAERS Safety Report 7272175-0 (Version None)
Quarter: 2011Q1

REPORT INFORMATION
  Report Type: 
  Country: None (occurrence: None)
  Receive Date: 20110203
  Receipt Date: 20110119
  Transmission Date: 20110831
  Serious: Yes (Other)
  Sender: FDA-Public Use
  Company Number: PHHY2011GB04488

PATIENT
  Age: 72 Year
  Sex: Female

DRUGS (5)
  1. ACICLOVIR [Suspect]
     Indication: HERPES ZOSTER
     Dosage: 800 MG, 5QD
     Dates: start: 20101125
  2. ACETAMINOPHEN [Concomitant]
     Indication: PAIN
  3. TRAMADOL HCL [Suspect]
     Indication: HERPES ZOSTER
     Dosage: 50 MG, BID
     Dates: start: 20101125
  4. AMLODIPINE [Concomitant]
  5. LEVOTHYROXINE SODIUM [Concomitant]
     Dosage: 75 MG, QD

REACTIONS (8)
  - ALOPECIA [None]
  - ASOCIAL BEHAVIOUR [None]
  - HALLUCINATION, AUDITORY [None]
  - MALAISE [None]
  - INSOMNIA [None]
  - NIGHT SWEATS [None]
  - BLOOD PRESSURE SYSTOLIC INCREASED [None]
  - HALLUCINATION, VISUAL [None]
